FAERS Safety Report 5807205-3 (Version None)
Quarter: 2008Q3

REPORT INFORMATION
  Report Type: 
  Country: None (occurrence: None)
  Receive Date: 20080711
  Receipt Date: 20080701
  Transmission Date: 20090109
  Serious: Yes (Disabling)
  Sender: FDA-Public Use
  Company Number: B0527495A

PATIENT
  Age: 41 Year
  Sex: Female

DRUGS (1)
  1. TYVERB [Suspect]
     Route: 048
     Dates: end: 20080623

REACTIONS (3)
  - COUGH [None]
  - DYSPNOEA [None]
  - INTERSTITIAL LUNG DISEASE [None]
